FAERS Safety Report 9696385 (Version 1)
Quarter: 2013Q4

REPORT INFORMATION
  Report Type: Spontaneous
  Country: US (occurrence: US)
  Receive Date: 20131119
  Receipt Date: 20131119
  Transmission Date: 20140711
  Serious: Yes (Hospitalization)
  Sender: FDA-Public Use
  Company Number: US-CUBIST PHARMACEUTICAL, INC.-2013CBST001146

PATIENT
  Sex: 0

DRUGS (1)
  1. CUBICIN [Suspect]
     Indication: ENDOCARDITIS STAPHYLOCOCCAL
     Dosage: MORE THAN OR EQUAL TO 8 MG/KG/DAY FOR ATLEAST 72 HOURS
     Route: 065

REACTIONS (2)
  - Staphylococcal bacteraemia [Recovered/Resolved]
  - Antimicrobial susceptibility test resistant [Unknown]
